FAERS Safety Report 6845803-9 (Version None)
Quarter: 2010Q3

REPORT INFORMATION
  Report Type: 
  Country: None (occurrence: None)
  Receive Date: 20100715
  Receipt Date: 20071106
  Transmission Date: 20110219
  Serious: Yes (Other)
  Sender: FDA-Public Use
  Company Number: US-PFIZER INC-2007071836

PATIENT
  Sex: Female
  Weight: 76.2 kg

DRUGS (9)
  1. CHANTIX [Suspect]
     Indication: SMOKING CESSATION THERAPY
     Route: 048
     Dates: start: 20070521, end: 20070701
  2. IMITREX [Concomitant]
  3. TOPAMAX [Concomitant]
  4. MOMETASONE FUROATE [Concomitant]
  5. CLONAZEPAM [Concomitant]
  6. ALLEGRA [Concomitant]
  7. VERAPAMIL [Concomitant]
  8. PREVACID [Concomitant]
  9. ALBUTEROL [Concomitant]

REACTIONS (6)
  - BRONCHITIS [None]
  - DYSGEUSIA [None]
  - HYPERTENSION [None]
  - MALAISE [None]
  - SINUSITIS [None]
  - UPPER RESPIRATORY TRACT INFECTION [None]
